FAERS Safety Report 6750034-7 (Version None)
Quarter: 2010Q2

REPORT INFORMATION
  Report Type: 
  Country: None (occurrence: None)
  Receive Date: 20100601
  Receipt Date: 20100527
  Transmission Date: 20101027
  Serious: Yes (Hospitalization)
  Sender: FDA-Public Use
  Company Number: US-RB-006002-10

PATIENT
  Age: 59 Year
  Sex: Male

DRUGS (2)
  1. SUBOXONE [Suspect]
     Dosage: DOSING IS 4 MG EVERY OTHER DAY
     Route: 060
  2. SUBOXONE [Suspect]
     Dosage: 8 MG EVERY OTHER DAY
     Route: 060
     Dates: start: 20091201

REACTIONS (4)
  - ABDOMINAL PAIN LOWER [None]
  - ASTHMA [None]
  - DECREASED APPETITE [None]
  - SEPSIS [None]
